FAERS Safety Report 7302978-5 (Version None)
Quarter: 2011Q1

REPORT INFORMATION
  Report Type: 
  Country: None (occurrence: None)
  Receive Date: 20110220
  Receipt Date: 20110208
  Transmission Date: 20110831
  Serious: Yes (Other)
  Sender: FDA-Public Use
  Company Number: US-BRISTOL-MYERS SQUIBB COMPANY-15536196

PATIENT
  Sex: Female

DRUGS (2)
  1. ONGLYZA [Suspect]
     Dosage: ONGLYZA TOOK FOR 6 WEEKS
  2. METFORMIN HCL [Concomitant]
     Dosage: FOR 5YEARS

REACTIONS (1)
  - PANCREATITIS [None]
